FAERS Safety Report 16107527 (Version 1)
Quarter: 2019Q1

REPORT INFORMATION
  Report Type: Spontaneous
  Country: US (occurrence: US)
  Receive Date: 20190322
  Receipt Date: 20190322
  Transmission Date: 20190418
  Serious: Yes (Other)
  Sender: FDA-Public Use
  Company Number: US-NOVOPROD-606749

PATIENT
  Age: 76 Year
  Sex: Male
  Weight: 69.39 kg

DRUGS (3)
  1. GLUCAGEN HYPOKIT [Suspect]
     Active Substance: GLUCAGON HYDROCHLORIDE
     Indication: HYPOGLYCAEMIC UNCONSCIOUSNESS
     Dosage: 1 MG, SINGLE
     Route: 030
     Dates: start: 20180616, end: 20180616
  2. LANTUS [Concomitant]
     Active Substance: INSULIN GLARGINE
     Indication: TYPE 1 DIABETES MELLITUS
     Dosage: UNK
     Route: 058
  3. NOVOLOG [Concomitant]
     Active Substance: INSULIN ASPART
     Indication: TYPE 1 DIABETES MELLITUS
     Dosage: 5 U, TID BEFORE MEALS
     Route: 058
     Dates: start: 201701

REACTIONS (2)
  - Drug ineffective [Recovered/Resolved]
  - Product reconstitution quality issue [Recovered/Resolved]

NARRATIVE: CASE EVENT DATE: 20180616
